FAERS Safety Report 19733592 (Version 1)
Quarter: 2021Q3

REPORT INFORMATION
  Report Type: Spontaneous
  Country: CA (occurrence: CA)
  Receive Date: 20210823
  Receipt Date: 20210823
  Transmission Date: 20211014
  Serious: Yes (Other)
  Sender: FDA-Public Use
  Company Number: CA-ROCHE-2890349

PATIENT
  Age: 76 Year
  Sex: Female

DRUGS (34)
  1. ARAVA [Suspect]
     Active Substance: LEFLUNOMIDE
     Indication: RHEUMATOID ARTHRITIS
     Route: 065
  2. SODIUM AUROTHIOMALATE [Suspect]
     Active Substance: GOLD SODIUM THIOMALATE
     Indication: PRODUCT USED FOR UNKNOWN INDICATION
     Route: 030
  3. DESOXIMETASONE. [Concomitant]
     Active Substance: DESOXIMETASONE
  4. NORFLEX [Concomitant]
     Active Substance: ORPHENADRINE CITRATE
  5. PANTOLOC [Concomitant]
     Active Substance: PANTOPRAZOLE SODIUM
  6. URISPAS [Concomitant]
     Active Substance: FLAVOXATE HYDROCHLORIDE
  7. HYDROXYCHLOROQUINE SULFATE. [Suspect]
     Active Substance: HYDROXYCHLOROQUINE SULFATE
     Indication: PRODUCT USED FOR UNKNOWN INDICATION
     Route: 065
  8. ACETAMINOPHEN. [Concomitant]
     Active Substance: ACETAMINOPHEN
  9. CODEINE [Concomitant]
     Active Substance: CODEINE
  10. DILAUDID [Concomitant]
     Active Substance: HYDROMORPHONE HYDROCHLORIDE
  11. RESTASIS [Concomitant]
     Active Substance: CYCLOSPORINE
  12. SYNTHROID [Concomitant]
     Active Substance: LEVOTHYROXINE SODIUM
  13. RITUXIMAB. [Concomitant]
     Active Substance: RITUXIMAB
     Route: 065
  14. VAGIFEM [Concomitant]
     Active Substance: ESTRADIOL
  15. HUMIRA [Suspect]
     Active Substance: ADALIMUMAB
     Indication: PRODUCT USED FOR UNKNOWN INDICATION
     Route: 058
  16. ANAKINRA [Concomitant]
     Active Substance: ANAKINRA
  17. ORENCIA [Suspect]
     Active Substance: ABATACEPT
     Indication: PRODUCT USED FOR UNKNOWN INDICATION
     Route: 042
  18. ATIVAN [Concomitant]
     Active Substance: LORAZEPAM
  19. BENADRYL [Concomitant]
     Active Substance: DIPHENHYDRAMINE HYDROCHLORIDE
  20. DARIFENACIN. [Concomitant]
     Active Substance: DARIFENACIN
  21. GOLD [Concomitant]
     Active Substance: GOLD
  22. OXYNEO [Concomitant]
     Active Substance: OXYCODONE
  23. ACTEMRA [Suspect]
     Active Substance: TOCILIZUMAB
     Indication: PRODUCT USED FOR UNKNOWN INDICATION
     Route: 065
  24. ENBREL [Suspect]
     Active Substance: ETANERCEPT
     Indication: RHEUMATOID ARTHRITIS
     Route: 065
  25. METHOTREXATE. [Suspect]
     Active Substance: METHOTREXATE
     Indication: PRODUCT USED FOR UNKNOWN INDICATION
     Route: 065
  26. REMICADE [Suspect]
     Active Substance: INFLIXIMAB
     Indication: PRODUCT USED FOR UNKNOWN INDICATION
     Route: 065
  27. KENALOG [Concomitant]
     Active Substance: TRIAMCINOLONE ACETONIDE
  28. LASIX [Concomitant]
     Active Substance: FUROSEMIDE
  29. XELJANZ [Suspect]
     Active Substance: TOFACITINIB CITRATE
     Indication: PRODUCT USED FOR UNKNOWN INDICATION
     Route: 065
  30. HYDROMORPHONE [Concomitant]
     Active Substance: HYDROMORPHONE
  31. KADIAN [Concomitant]
     Active Substance: MORPHINE SULFATE
  32. OMNARIS [Concomitant]
     Active Substance: CICLESONIDE
  33. LOPERAMIDE [Concomitant]
     Active Substance: LOPERAMIDE
  34. TRIMETHOPRIM. [Concomitant]
     Active Substance: TRIMETHOPRIM

REACTIONS (14)
  - Liver function test abnormal [Recovered/Resolved]
  - Pneumonia viral [Recovered/Resolved]
  - Soft tissue disorder [Recovered/Resolved]
  - Peripheral swelling [Recovered/Resolved]
  - Blood cholesterol increased [Recovered/Resolved]
  - Herpes zoster [Recovered/Resolved]
  - Anaemia [Recovered/Resolved]
  - Leukopenia [Recovered/Resolved]
  - Synovitis [Recovered/Resolved]
  - Arthralgia [Recovered/Resolved]
  - Arthritis [Recovered/Resolved]
  - Fibromyalgia [Recovered/Resolved]
  - Infection [Recovered/Resolved]
  - Joint swelling [Recovered/Resolved]
